FAERS Safety Report 8601078 (Version 4)
Quarter: 2013Q1

REPORT INFORMATION
  Report Type: Spontaneous
  Country: US (occurrence: US)
  Receive Date: 20120606
  Receipt Date: 20130328
  Transmission Date: 20140127
  Serious: Yes (Other)
  Sender: FDA-Public Use
  Company Number: US-PFIZER INC-2012131658

PATIENT
  Age: 60 Year
  Sex: Female
  Weight: 87.53 kg

DRUGS (24)
  1. LYRICA [Suspect]
     Indication: NEUROPATHY PERIPHERAL
     Dosage: 200 MG, 2X/DAY
     Route: 048
     Dates: start: 2010, end: 201212
  2. ADVAIR [Concomitant]
     Dosage: UNK, 2X/DAY
  3. ADVAIR [Concomitant]
     Dosage: UNK
  4. SPIRIVA [Concomitant]
     Dosage: UNK, 1X/DAY
  5. SPIRIVA [Concomitant]
     Dosage: UNK
  6. PLAVIX [Concomitant]
     Dosage: 75 MG, 1X/DAY
  7. PLAVIX [Concomitant]
     Dosage: UNK
  8. SYNTHROID [Concomitant]
     Dosage: 25 UG, 1X/DAY
  9. SYNTHROID [Concomitant]
     Dosage: UNK
  10. FERROUS SULFATE [Concomitant]
     Dosage: 325 MG, 1X/DAY
  11. FERROUS SULFATE [Concomitant]
     Dosage: UNK
  12. CRESTOR [Concomitant]
     Dosage: 40 MG, 1X/DAY
  13. RANITIDINE [Concomitant]
     Dosage: UNK, 1X/DAY
  14. RANITIDINE [Concomitant]
     Dosage: UNK
  15. ASPIRIN [Concomitant]
     Dosage: 81 MG, 1X/DAY
  16. ASPIRIN [Concomitant]
     Dosage: 325 MG, UNK
  17. PAXIL [Concomitant]
     Dosage: 60 MG, 1X/DAY
  18. PAXIL [Concomitant]
     Dosage: 50 MG, UNK
  19. HYZAAR [Concomitant]
     Dosage: 100/12.5 MG, 1X/DAY
  20. XANAX [Concomitant]
     Dosage: 1 MG, 4X/DAY
  21. ELAVIL [Concomitant]
     Dosage: 30 MG, 1X/DAY
  22. METFORMIN [Concomitant]
     Dosage: 1000 MG, 1X/DAY
  23. LANTUS [Concomitant]
     Dosage: UNK, 1X/DAY
  24. ATORVASTATIN [Concomitant]
     Dosage: UNK

REACTIONS (11)
  - Fall [Unknown]
  - Thrombosis [Unknown]
  - Blue toe syndrome [Not Recovered/Not Resolved]
  - Panic attack [Unknown]
  - Hypoaesthesia [Not Recovered/Not Resolved]
  - Oropharyngeal pain [Unknown]
  - Malaise [Unknown]
  - Neuropathy peripheral [Unknown]
  - Pain [Not Recovered/Not Resolved]
  - Arthralgia [Not Recovered/Not Resolved]
  - Hypoaesthesia [Not Recovered/Not Resolved]
